FAERS Safety Report 16943968 (Version 3)
Quarter: 2020Q1

REPORT INFORMATION
  Report Type: Report from Study
  Country: US (occurrence: US)
  Receive Date: 20191022
  Receipt Date: 20200107
  Transmission Date: 20200409
  Serious: Yes (Hospitalization)
  Sender: FDA-Public Use
  Company Number: US-GILEAD-2019-0431617

PATIENT
  Age: 63 Year
  Sex: Female

DRUGS (17)
  1. ASPIRIN [ACETYLSALICYLIC ACID;ASCORBIC ACID] [Concomitant]
     Active Substance: ACETAMINOPHEN\ASCORBIC ACID
  2. BUMETANIDE. [Concomitant]
     Active Substance: BUMETANIDE
  3. DULOXETINE. [Concomitant]
     Active Substance: DULOXETINE
  4. SILDENAFIL. [Concomitant]
     Active Substance: SILDENAFIL
  5. IRON [Concomitant]
     Active Substance: IRON
  6. AMBRISENTAN [Suspect]
     Active Substance: AMBRISENTAN
     Indication: PRODUCT USED FOR UNKNOWN INDICATION
     Dosage: 10 MG
     Route: 065
     Dates: start: 20160329
  7. POTASSIUM CHLORIDE. [Concomitant]
     Active Substance: POTASSIUM CHLORIDE
  8. AMITRIPTYLINE [Concomitant]
     Active Substance: AMITRIPTYLINE
  9. GABAPENTIN. [Concomitant]
     Active Substance: GABAPENTIN
  10. PANTOPRAZOLE [Concomitant]
     Active Substance: PANTOPRAZOLE
  11. ROPINIROLE. [Concomitant]
     Active Substance: ROPINIROLE
  12. METFORMIN [Concomitant]
     Active Substance: METFORMIN HYDROCHLORIDE
  13. LOSARTAN. [Concomitant]
     Active Substance: LOSARTAN
  14. ATORVASTATIN [Concomitant]
     Active Substance: ATORVASTATIN
  15. ELIQUIS [Concomitant]
     Active Substance: APIXABAN
  16. DILTIAZEM. [Concomitant]
     Active Substance: DILTIAZEM
  17. MEXILETINE [Concomitant]
     Active Substance: MEXILETINE

REACTIONS (4)
  - Dyspnoea [Not Recovered/Not Resolved]
  - Product dose omission [Not Recovered/Not Resolved]
  - Haemoglobin decreased [Unknown]
  - Malaise [Not Recovered/Not Resolved]
